FAERS Safety Report 4447386-X (Version None)
Quarter: 2004Q3

REPORT INFORMATION
  Report Type: 
  Country: None (occurrence: None)
  Receive Date: 20040802
  Receipt Date: 20040702
  Transmission Date: 20050211
  Serious: No
  Sender: FDA-Public Use
  Company Number: 2004-118108-NL

PATIENT
  Age: 29 Year
  Sex: Male
  Weight: 72.7 kg

DRUGS (2)
  1. NUVARING [Suspect]
     Dosage: DF DAILY
     Dates: start: 20040601
  2. ORGANIC VAGINAL LUBRICANT CALLED NUDE [Concomitant]

REACTIONS (1)
  - PENIS DISORDER [None]
